FAERS Safety Report 8000739-5 (Version None)
Quarter: 2011Q4

REPORT INFORMATION
  Report Type: 
  Country: None (occurrence: None)
  Receive Date: 20111222
  Receipt Date: 20111214
  Transmission Date: 20120403
  Serious: Yes (Hospitalization, Other)
  Sender: FDA-Public Use
  Company Number: US-VERTEX PHARMACEUTICALS INC.-AE-2011-004368

PATIENT
  Sex: Female

DRUGS (3)
  1. INCIVEK [Suspect]
     Indication: HEPATITIS C
     Route: 048
     Dates: start: 20110620
  2. PEGASYS [Concomitant]
     Indication: HEPATITIS C
     Route: 058
     Dates: start: 20110620
  3. RIBAVIRIN [Concomitant]
     Indication: HEPATITIS C
     Route: 048
     Dates: start: 20110620

REACTIONS (15)
  - HEPATIC MASS [None]
  - INSOMNIA [None]
  - FATIGUE [None]
  - DEPRESSION [None]
  - TREMOR [None]
  - PRURITUS [None]
  - PYREXIA [None]
  - WEIGHT INCREASED [None]
  - STRESS [None]
  - RASH GENERALISED [None]
  - SWELLING [None]
  - SUICIDAL IDEATION [None]
  - ALOPECIA [None]
  - HAEMOGLOBIN DECREASED [None]
  - DECREASED APPETITE [None]
